FAERS Safety Report 8582485-2 (Version None)
Quarter: 2012Q3

REPORT INFORMATION
  Report Type: 
  Country: None (occurrence: None)
  Receive Date: 20120809
  Receipt Date: 20120727
  Transmission Date: 20120928
  Serious: Yes (Hospitalization)
  Sender: FDA-Public Use
  Company Number: JP-ROCHE-1069389

PATIENT
  Sex: Male
  Weight: 85 kg

DRUGS (15)
  1. ISOVORIN [Concomitant]
     Dosage: DOSAGE IS UNCERTAIN.
     Route: 041
     Dates: start: 20120523, end: 20120523
  2. FLUOROURACIL [Concomitant]
     Dosage: DOSAGE IS UNCERTAIN.
     Route: 041
     Dates: start: 20120523, end: 20120501
  3. AVASTIN [Suspect]
     Indication: RECTAL CANCER RECURRENT
     Route: 041
     Dates: start: 20120328, end: 20120411
  4. METFORMIN HYDROCHLORIDE [Concomitant]
     Indication: DIABETES MELLITUS
     Route: 048
     Dates: start: 20111107
  5. SLOW-K [Concomitant]
     Indication: DIABETES MELLITUS
     Route: 048
     Dates: start: 20111107
  6. AVASTIN [Suspect]
     Dosage: DOSAGE IS UNCERTAIN.
     Route: 041
     Dates: start: 20120523, end: 20120523
  7. MS CONTIN [Concomitant]
     Indication: CANCER PAIN
     Route: 048
     Dates: start: 20120328
  8. OXALIPLATIN [Concomitant]
     Indication: RECTAL CANCER RECURRENT
     Route: 041
     Dates: start: 20120328, end: 20120411
  9. KYTRIL [Concomitant]
     Route: 041
     Dates: start: 20120328, end: 20120411
  10. FLUOROURACIL [Concomitant]
     Dosage: DOSAGE IS UNCERTAIN.
     Route: 040
     Dates: start: 20120523, end: 20120523
  11. OXALIPLATIN [Concomitant]
     Dosage: DOSAGE IS UNCERTAIN.
     Route: 041
     Dates: start: 20120523, end: 20120523
  12. ISOVORIN [Concomitant]
     Indication: RECTAL CANCER RECURRENT
     Route: 041
     Dates: start: 20120328, end: 20120411
  13. FLUOROURACIL [Concomitant]
     Indication: RECTAL CANCER RECURRENT
     Dosage: DOSAGE IS UNCERTAIN.
     Route: 040
     Dates: start: 20120328, end: 20120411
  14. DECADRON PHOSPHATE [Concomitant]
     Route: 041
     Dates: start: 20120328, end: 20120411
  15. FLUOROURACIL [Concomitant]
     Route: 041
     Dates: start: 20120328, end: 20120401

REACTIONS (2)
  - PERINEAL ABSCESS [None]
  - GASTRIC ULCER [None]
